FAERS Safety Report 7729107-8 (Version None)
Quarter: 2011Q3

REPORT INFORMATION
  Report Type: 
  Country: None (occurrence: None)
  Receive Date: 20110906
  Receipt Date: 20110822
  Transmission Date: 20111222
  Serious: Yes (Disabling)
  Sender: FDA-Public Use
  Company Number: FR-MYLANLABS-2011S1015353

PATIENT
  Age: 82 Year
  Sex: Female
  Weight: 73 kg

DRUGS (6)
  1. LACTULOSE [Concomitant]
     Indication: PRODUCT USED FOR UNKNOWN INDICATION
  2. CLARITHROMYCIN [Suspect]
     Indication: LUNG DISORDER
     Dates: start: 20110530, end: 20110604
  3. ACETAMINOPHEN [Concomitant]
     Indication: PRODUCT USED FOR UNKNOWN INDICATION
  4. PIVALONE /00803802/ [Concomitant]
     Indication: PRODUCT USED FOR UNKNOWN INDICATION
  5. HELICIDINE [Concomitant]
     Indication: PRODUCT USED FOR UNKNOWN INDICATION
  6. RILMENIDINE [Concomitant]
     Indication: PRODUCT USED FOR UNKNOWN INDICATION

REACTIONS (3)
  - FUNGAL INFECTION [None]
  - DYSPHONIA [None]
  - SENSORY DISTURBANCE [None]
